FAERS Safety Report 5929496-0 (Version None)
Quarter: 2008Q4

REPORT INFORMATION
  Report Type: 
  Country: None (occurrence: None)
  Receive Date: 20081024
  Receipt Date: 20081023
  Transmission Date: 20090506
  Serious: Yes (Hospitalization)
  Sender: FDA-Public Use
  Company Number: A0752026A

PATIENT
  Age: 25 Year
  Sex: Female

DRUGS (2)
  1. ZOFRAN [Suspect]
     Indication: NAUSEA
     Route: 048
  2. VITAMINS [Concomitant]

REACTIONS (3)
  - DEHYDRATION [None]
  - DELIVERY [None]
  - DRUG EXPOSURE DURING PREGNANCY [None]
